FAERS Safety Report 19878430 (Version 1)
Quarter: 2021Q3

REPORT INFORMATION
  Report Type: Spontaneous
  Country: US (occurrence: US)
  Receive Date: 20210924
  Receipt Date: 20210924
  Transmission Date: 20211014
  Serious: Yes (Death, Life-Threatening, Other)
  Sender: FDA-Public Use
  Company Number: None

PATIENT
  Age: 72 Year
  Sex: Male
  Weight: 119.3 kg

DRUGS (1)
  1. BARICITINIB. [Suspect]
     Active Substance: BARICITINIB
     Indication: COVID-19
     Route: 048
     Dates: start: 20210913, end: 20210916

REACTIONS (4)
  - Sputum culture positive [None]
  - Staphylococcal infection [None]
  - Staphylococcus test positive [None]
  - Renal impairment [None]

NARRATIVE: CASE EVENT DATE: 20210922
